FAERS Safety Report 5157575-7 (Version None)
Quarter: 2006Q4

REPORT INFORMATION
  Report Type: 
  Country: None (occurrence: None)
  Receive Date: 20061127
  Receipt Date: 20061121
  Transmission Date: 20070319
  Serious: Yes (Other)
  Sender: FDA-Public Use
  Company Number: AU-GLAXOSMITHKLINE-B0448085A

PATIENT
  Sex: Male

DRUGS (2)
  1. AVANDIA [Suspect]
     Indication: DRUG USE FOR UNKNOWN INDICATION
     Route: 065
     Dates: start: 20060901
  2. MIRTAZAPINE [Concomitant]

REACTIONS (3)
  - EYE PAIN [None]
  - MACULAR OEDEMA [None]
  - OEDEMA PERIPHERAL [None]
